FAERS Safety Report 6151038-8 (Version None)
Quarter: 2009Q2

REPORT INFORMATION
  Report Type: 
  Country: None (occurrence: None)
  Receive Date: 20090410
  Receipt Date: 20090310
  Transmission Date: 20091009
  Serious: No
  Sender: FDA-Public Use
  Company Number: A0772343A

PATIENT
  Age: 40 Year
  Sex: Female

DRUGS (16)
  1. TYKERB [Suspect]
     Indication: BREAST CANCER
     Dosage: 5TAB PER DAY
     Route: 048
     Dates: start: 20090307
  2. XELODA [Concomitant]
  3. HYDROCHLOROTHIAZIDE [Concomitant]
  4. MAXZIDE [Concomitant]
  5. ATIVAN [Concomitant]
  6. PRILOSEC [Concomitant]
  7. FLEX-ALL [Concomitant]
  8. PHENERGAN [Concomitant]
  9. PHENERGAN SUPPOSITORY [Concomitant]
  10. COLACE [Concomitant]
  11. ENULOSE [Concomitant]
  12. OXYCONTIN [Concomitant]
  13. OXYCODONE HCL [Concomitant]
  14. REMERON [Concomitant]
  15. TEGRETOL [Concomitant]
  16. NYSTATIN [Concomitant]

REACTIONS (6)
  - INSOMNIA [None]
  - NAUSEA [None]
  - OEDEMA PERIPHERAL [None]
  - PERIPHERAL COLDNESS [None]
  - STOMATITIS [None]
  - VOMITING [None]
